FAERS Safety Report 7583339-0 (Version None)
Quarter: 2011Q2

REPORT INFORMATION
  Report Type: 
  Country: None (occurrence: None)
  Receive Date: 20110630
  Receipt Date: 20110607
  Transmission Date: 20111010
  Serious: Yes (Hospitalization)
  Sender: FDA-Public Use
  Company Number: AU-AMGEN-AUSCT2011027742

PATIENT
  Age: 74 Year
  Sex: Female

DRUGS (14)
  1. LIPITOR [Concomitant]
     Dosage: 200 MG, QD
  2. PROGOUT [Concomitant]
     Dosage: 100 MG, QD
  3. CIPROFLOXACIN [Concomitant]
  4. ANTIBIOTICS [Concomitant]
  5. MAGNESIUM [Concomitant]
     Dosage: 1 G, UNK
  6. PERIACTIN [Concomitant]
     Dosage: 4 MG, BID
  7. OXAZEPAM [Concomitant]
     Dosage: 30 MG, QD
  8. CALCITRIOL [Concomitant]
     Dosage: 25 MG, QWK
  9. FOLIC ACID [Concomitant]
     Dosage: 5 MG, QD
  10. RENAGEL [Concomitant]
     Dosage: 1600 MG, UNK
  11. ASPIRIN AND DIPYRIDAMOLE [Concomitant]
     Dosage: UNK UNK, BID
  12. SOTALOL HCL [Concomitant]
  13. CINACALCET HYDROCHLORIDE [Suspect]
     Indication: HYPERPARATHYROIDISM SECONDARY
     Dates: start: 20080102
  14. PLACEBO [Suspect]
     Indication: HYPERPARATHYROIDISM SECONDARY
     Dates: start: 20080102

REACTIONS (1)
  - CEREBROVASCULAR ACCIDENT [None]
